FAERS Safety Report 24270322 (Version 1)
Quarter: 2024Q3

REPORT INFORMATION
  Report Type: Report from Study
  Country: US (occurrence: None)
  Receive Date: 20240830
  Receipt Date: 20240830
  Transmission Date: 20241016
  Serious: Yes (Disabling)
  Sender: ASTRAZENECA
  Company Number: 2024A062073

PATIENT
  Age: 804 Month
  Sex: Female

DRUGS (7)
  1. LYNPARZA [Suspect]
     Active Substance: OLAPARIB
     Indication: Ovarian cancer
     Route: 048
     Dates: start: 20240122
  2. LYNPARZA [Suspect]
     Active Substance: OLAPARIB
     Indication: Metastases to peritoneum
     Route: 048
     Dates: start: 20240122
  3. LYNPARZA [Suspect]
     Active Substance: OLAPARIB
     Indication: Metastases to breast
     Route: 048
     Dates: start: 20240122
  4. ELIQUIS [Concomitant]
     Active Substance: APIXABAN
  5. GABAPENTIN [Concomitant]
     Active Substance: GABAPENTIN
  6. LISINOPRIL [Concomitant]
     Active Substance: LISINOPRIL
  7. METFORMIN [Concomitant]
     Active Substance: METFORMIN HYDROCHLORIDE

REACTIONS (8)
  - Trigger finger [Unknown]
  - Arthritis [Unknown]
  - Magnetic resonance imaging abnormal [Not Recovered/Not Resolved]
  - Laboratory test abnormal [Recovered/Resolved]
  - Peripheral swelling [Unknown]
  - Musculoskeletal stiffness [Unknown]
  - Joint stiffness [Unknown]
  - Product dose omission in error [Unknown]

NARRATIVE: CASE EVENT DATE: 20240101
